FAERS Safety Report 25422790 (Version 1)
Quarter: 2025Q2

REPORT INFORMATION
  Report Type: Spontaneous
  Country: US (occurrence: US)
  Receive Date: 20250611
  Receipt Date: 20250611
  Transmission Date: 20250716
  Serious: No
  Sender: DR REDDYS
  Company Number: None

PATIENT
  Age: 32 Year
  Sex: Male

DRUGS (5)
  1. BUPRENORPHINE\NALOXONE [Suspect]
     Active Substance: BUPRENORPHINE\NALOXONE
     Indication: Drug use disorder
     Dosage: WITH DOSING EVENLY SPLIT TWICE DAILY. ADJUSTED DOSAGE TO 20 MG, AND SUBSEQUENTLY TO 24 MG, RESPECTIV
     Route: 060
  2. BUPRENORPHINE\NALOXONE [Suspect]
     Active Substance: BUPRENORPHINE\NALOXONE
     Dosage: WITH DOSING EVENLY SPLIT TWICE DAILY. ADJUSTED DOSAGE TO 20 MG, AND SUBSEQUENTLY TO 24 MG, RESPECTIV
     Route: 060
  3. BUPRENORPHINE\NALOXONE [Suspect]
     Active Substance: BUPRENORPHINE\NALOXONE
     Dosage: WITH DOSING EVENLY SPLIT TWICE DAILY. ADJUSTED DOSAGE TO 20 MG, AND SUBSEQUENTLY TO 24 MG, RESPECTIV
     Route: 060
  4. BUPRENORPHINE [Suspect]
     Active Substance: BUPRENORPHINE
     Indication: Drug use disorder
     Dosage: PURCHASED NON-PRESCRIBED BUPRENORPHINE AND ILLICIT SUBLINGUAL USE OF BUPRENORPHINE EVERY OTHER DAY
     Route: 060
  5. BUPRENORPHINE [Suspect]
     Active Substance: BUPRENORPHINE

REACTIONS (1)
  - Constipation [Recovered/Resolved]
